FAERS Safety Report 8368467-4 (Version None)
Quarter: 2012Q2

REPORT INFORMATION
  Report Type: 
  Country: None (occurrence: None)
  Receive Date: 20120518
  Receipt Date: 20120514
  Transmission Date: 20120825
  Serious: Yes (Other)
  Sender: FDA-Public Use
  Company Number: PHHY2012GB041046

PATIENT
  Age: 52 Year
  Sex: Male

DRUGS (1)
  1. METHOTREXATE [Suspect]
     Indication: BURKITT'S LYMPHOMA
     Dosage: 12.5 MG, UNK
     Route: 037

REACTIONS (4)
  - HEADACHE [None]
  - NECK PAIN [None]
  - SUBDURAL HYGROMA [None]
  - SOMNOLENCE [None]
